FAERS Safety Report 16821740 (Version 1)
Quarter: 2019Q3

REPORT INFORMATION
  Report Type: Spontaneous
  Country: US (occurrence: US)
  Receive Date: 20190726
  Receipt Date: 20190726
  Transmission Date: 20191005
  Serious: Yes (Hospitalization)
  Sender: FDA-Public Use
  Company Number: None

PATIENT
  Age: 45 Year
  Sex: Male

DRUGS (5)
  1. IBUPROFEN. [Concomitant]
     Active Substance: IBUPROFEN
  2. PAROXTINE [Concomitant]
  3. INDOMETHACIN. [Concomitant]
     Active Substance: INDOMETHACIN
  4. TAMSULOSIN [Concomitant]
     Active Substance: TAMSULOSIN
  5. ENBREL [Suspect]
     Active Substance: ETANERCEPT
     Indication: RHEUMATOID ARTHRITIS

REACTIONS (2)
  - Therapy cessation [None]
  - Foot operation [None]

NARRATIVE: CASE EVENT DATE: 20190710
